FAERS Safety Report 4591094-1 (Version None)
Quarter: 2005Q1

REPORT INFORMATION
  Report Type: 
  Country: None (occurrence: None)
  Receive Date: 20050222
  Receipt Date: 20050222
  Transmission Date: 20050727
  Serious: Yes (Other)
  Sender: FDA-Public Use
  Company Number: None

PATIENT
  Age: 47 Year
  Sex: Female
  Weight: 60.782 kg

DRUGS (7)
  1. TIZANIDINE [Suspect]
     Indication: MULTIPLE SCLEROSIS
     Dosage: 4MG AND 8MG  BID ORAL
     Route: 048
     Dates: start: 20050125, end: 20050218
  2. TIZANIDINE [Suspect]
     Indication: MUSCLE SPASTICITY
     Dosage: 4MG AND 8MG  BID ORAL
     Route: 048
     Dates: start: 20050125, end: 20050218
  3. COPAXONE [Concomitant]
  4. PREVACID [Concomitant]
  5. WELLBUTRIN SR [Concomitant]
  6. FEMHRT [Concomitant]
  7. TIZANIDINE [Concomitant]

REACTIONS (5)
  - DRUG EFFECT DECREASED [None]
  - DRY MOUTH [None]
  - FATIGUE [None]
  - MUSCLE SPASTICITY [None]
  - PHARMACEUTICAL PRODUCT COMPLAINT [None]
